FAERS Safety Report 12612137 (Version 1)
Quarter: 2016Q3

REPORT INFORMATION
  Report Type: Spontaneous
  Country: US (occurrence: US)
  Receive Date: 20160801
  Receipt Date: 20160801
  Transmission Date: 20161109
  Serious: Yes (Hospitalization)
  Sender: FDA-Public Use
  Company Number: US-JNJFOC-20160715138

PATIENT
  Sex: Female
  Weight: 40.82 kg

DRUGS (3)
  1. FOLIC ACID. [Concomitant]
     Active Substance: FOLIC ACID
     Indication: APPETITE DISORDER
     Route: 065
  2. TYLENOL WITH CODEINE [Suspect]
     Active Substance: ACETAMINOPHEN\CODEINE PHOSPHATE
     Indication: SICKLE CELL ANAEMIA
     Dosage: STARTED IN 2001 OR 2002; 300-600 TABLETS -EVERY 4 HOURS AS NEEDED
     Route: 048
  3. TYLENOL WITH CODEINE [Suspect]
     Active Substance: ACETAMINOPHEN\CODEINE PHOSPHATE
     Indication: SICKLE CELL ANAEMIA
     Dosage: 300-600 TABLETS -EVERY 4 HOURS AS NEEDED
     Route: 048

REACTIONS (20)
  - Toothache [Not Recovered/Not Resolved]
  - Coagulopathy [Not Recovered/Not Resolved]
  - Fatigue [Unknown]
  - Weight fluctuation [Unknown]
  - Disturbance in attention [Unknown]
  - Haemorrhage [Not Recovered/Not Resolved]
  - Polydipsia [Unknown]
  - Drug administration error [Unknown]
  - Pain [Unknown]
  - Off label use [Unknown]
  - Depression [Unknown]
  - Nephrolithiasis [Unknown]
  - Bacteraemia [Not Recovered/Not Resolved]
  - Scoliosis [Not Recovered/Not Resolved]
  - Impaired healing [Not Recovered/Not Resolved]
  - Product use issue [Unknown]
  - Spinal disorder [Not Recovered/Not Resolved]
  - Drug hypersensitivity [Unknown]
  - Dental caries [Not Recovered/Not Resolved]
  - Depressed mood [Unknown]
